FAERS Safety Report 9951094 (Version 1)
Quarter: 2014Q1

REPORT INFORMATION
  Report Type: Spontaneous
  Country: US (occurrence: US)
  Receive Date: 20140304
  Receipt Date: 20140304
  Transmission Date: 20141002
  Serious: Yes (Hospitalization, Other)
  Sender: FDA-Public Use
  Company Number: PHEH2014US003573

PATIENT
  Age: 87 Year
  Sex: Female
  Weight: 151 kg

DRUGS (1)
  1. NILOTINIB [Suspect]
     Indication: CHRONIC MYELOID LEUKAEMIA
     Dosage: 200 MG, BID
     Route: 048

REACTIONS (3)
  - Gangrene [Recovering/Resolving]
  - Plasma cell myeloma [Recovering/Resolving]
  - Second primary malignancy [Recovering/Resolving]
